FAERS Safety Report 21483542 (Version 4)
Quarter: 2023Q1

REPORT INFORMATION
  Report Type: Report from Study
  Country: US (occurrence: US)
  Receive Date: 20221020
  Receipt Date: 20230131
  Transmission Date: 20230417
  Serious: No
  Sender: FDA-Public Use
  Company Number: US-ABBVIE-4163884

PATIENT
  Age: 71 Year
  Sex: Female

DRUGS (1)
  1. SKYRIZI [Suspect]
     Active Substance: RISANKIZUMAB-RZAA
     Indication: Psoriasis
     Dosage: WEEK 4?150 MG
     Route: 058
     Dates: start: 20220913

REACTIONS (12)
  - Cough [Not Recovered/Not Resolved]
  - Oropharyngeal pain [Unknown]
  - Headache [Unknown]
  - Back pain [Unknown]
  - Pain in extremity [Not Recovered/Not Resolved]
  - Psoriasis [Unknown]
  - Sinus disorder [Unknown]
  - Fatigue [Not Recovered/Not Resolved]
  - Abdominal pain upper [Not Recovered/Not Resolved]
  - Dizziness [Unknown]
  - Diarrhoea [Not Recovered/Not Resolved]
  - Myalgia [Not Recovered/Not Resolved]

NARRATIVE: CASE EVENT DATE: 20221001
